FAERS Safety Report 9312407 (Version 1)
Quarter: 2013Q2

REPORT INFORMATION
  Report Type: Spontaneous
  Country: GB (occurrence: GB)
  Receive Date: 20130528
  Receipt Date: 20130528
  Transmission Date: 20140414
  Serious: Yes (Hospitalization)
  Sender: FDA-Public Use
  Company Number: PHHY2013GB053252

PATIENT
  Age: 39 Year
  Sex: Male
  Weight: 91 kg

DRUGS (4)
  1. PARACETAMOL [Suspect]
     Dosage: 15 G, ONCE/SINGLE
  2. COCAINE [Suspect]
  3. CANNABIS [Suspect]
  4. ALCOHOL [Suspect]

REACTIONS (5)
  - Hepatic failure [Recovered/Resolved]
  - Encephalopathy [Recovered/Resolved]
  - Abdominal pain upper [Recovered/Resolved]
  - Vomiting [Recovered/Resolved]
  - Overdose [Unknown]
